FAERS Safety Report 8023612-5 (Version None)
Quarter: 2012Q1

REPORT INFORMATION
  Report Type: 
  Country: None (occurrence: None)
  Receive Date: 20120104
  Receipt Date: 20120104
  Transmission Date: 20120608
  Serious: Yes (Other)
  Sender: FDA-Public Use
  Company Number: None

PATIENT
  Sex: Female

DRUGS (3)
  1. PEGASYS [Suspect]
     Indication: HEPATITIS C
     Dosage: PEGASYS EACH WEEK SUBCUTANEOUSLY
     Route: 058
     Dates: start: 20111206
  2. PEGASYS [Suspect]
     Indication: COMA
     Dosage: PEGASYS EACH WEEK SUBCUTANEOUSLY
     Route: 058
     Dates: start: 20111206
  3. RIBASPHERE [Suspect]
     Dosage: RIBASPHERE 400MG BID BY MOUTH
     Route: 048
     Dates: start: 20111206

REACTIONS (3)
  - HALLUCINATION, OLFACTORY [None]
  - DEPRESSION [None]
  - SUICIDAL IDEATION [None]
